FAERS Safety Report 11540937 (Version 1)
Quarter: 2015Q3

REPORT INFORMATION
  Report Type: Report from Study
  Country: BR (occurrence: BR)
  Receive Date: 20150923
  Receipt Date: 20150923
  Transmission Date: 20151125
  Serious: Yes (Other)
  Sender: FDA-Public Use
  Company Number: BR-ABBVIE-15K-020-1466280-00

PATIENT
  Sex: Female
  Weight: 60 kg

DRUGS (3)
  1. PREDNISONE. [Concomitant]
     Active Substance: PREDNISONE
     Indication: PAIN
     Route: 048
     Dates: start: 2011
  2. PREDNISONE. [Concomitant]
     Active Substance: PREDNISONE
     Indication: SWELLING
  3. HUMIRA [Suspect]
     Active Substance: ADALIMUMAB
     Indication: RHEUMATOID ARTHRITIS
     Route: 065
     Dates: start: 2015, end: 201507

REACTIONS (6)
  - Hypersensitivity [Recovering/Resolving]
  - Rash macular [Recovered/Resolved]
  - Throat tightness [Recovering/Resolving]
  - Pruritus allergic [Recovered/Resolved]
  - Dyspnoea [Recovering/Resolving]
  - Dermatitis allergic [Recovered/Resolved]

NARRATIVE: CASE EVENT DATE: 2015
